FAERS Safety Report 18879190 (Version 2)
Quarter: 2021Q1

REPORT INFORMATION
  Report Type: Spontaneous
  Country: US (occurrence: US)
  Receive Date: 20210211
  Receipt Date: 20210225
  Transmission Date: 20210420
  Serious: No
  Sender: FDA-Public Use
  Company Number: US-TAKEDA-2021TUS008605

PATIENT
  Sex: Male
  Weight: 83.9 kg

DRUGS (6)
  1. NORMAL SALINE [Concomitant]
     Active Substance: SODIUM CHLORIDE
  2. HYQVIA [Suspect]
     Active Substance: HUMAN IMMUNOGLOBULIN G\HYALURONIDASE RECOMBINANT HUMAN
     Indication: IMMUNODEFICIENCY COMMON VARIABLE
     Dosage: 50 GRAM, Q4WEEKS
     Route: 058
     Dates: start: 20210204
  3. EPINEPHRINE. [Concomitant]
     Active Substance: EPINEPHRINE
  4. ACETAMINOPHEN. [Concomitant]
     Active Substance: ACETAMINOPHEN
  5. DIPHENHYDRAMINE. [Concomitant]
     Active Substance: DIPHENHYDRAMINE
  6. LIDOCAINE. [Concomitant]
     Active Substance: LIDOCAINE

REACTIONS (7)
  - Infusion related reaction [Unknown]
  - Nuchal rigidity [Unknown]
  - Swelling [Unknown]
  - Fatigue [Unknown]
  - Chills [Unknown]
  - Discomfort [Unknown]
  - Myalgia [Unknown]
